FAERS Safety Report 5935648-6 (Version None)
Quarter: 2008Q4

REPORT INFORMATION
  Report Type: 
  Country: None (occurrence: None)
  Receive Date: 20081030
  Receipt Date: 20081023
  Transmission Date: 20090506
  Serious: Yes (Hospitalization)
  Sender: FDA-Public Use
  Company Number: DK-NOVOPROD-278200

PATIENT
  Sex: Female
  Weight: 85.4 kg

DRUGS (4)
  1. INSULATARD PENFILL HM(GE) 3.0 ML [Suspect]
     Indication: TYPE 1 DIABETES MELLITUS
     Dosage: 41 IU, QD
     Route: 058
     Dates: start: 20080423
  2. NOVORAPID PENFILL 3.0 ML [Suspect]
     Indication: TYPE 1 DIABETES MELLITUS
     Dosage: 28 IU, QD
     Route: 058
     Dates: start: 20080423
  3. GRAVITAMON [Concomitant]
     Dates: start: 20071215
  4. PRIMPERAN                          /00041901/ [Concomitant]
     Indication: DRUG USE FOR UNKNOWN INDICATION
     Dates: start: 20080801, end: 20080801

REACTIONS (3)
  - NAUSEA [None]
  - POLYMORPHIC ERUPTION OF PREGNANCY [None]
  - VOMITING [None]
